FAERS Safety Report 5509686-1 (Version None)
Quarter: 2007Q4

REPORT INFORMATION
  Report Type: 
  Country: None (occurrence: None)
  Receive Date: 20071107
  Receipt Date: 20071107
  Transmission Date: 20080405
  Serious: Yes (Hospitalization)
  Sender: FDA-Public Use
  Company Number: None

PATIENT
  Sex: Male
  Weight: 85 kg

DRUGS (1)
  1. HEPARIN [Suspect]
     Indication: INTRAVENOUS CATHETER MANAGEMENT
     Dosage: 5ML PRN IV FLUSH
     Route: 042
     Dates: start: 20070201

REACTIONS (4)
  - FAECES DISCOLOURED [None]
  - HAEMATOCHEZIA [None]
  - HEPARIN-INDUCED THROMBOCYTOPENIA [None]
  - RESPIRATORY FAILURE [None]
